FAERS Safety Report 17106248 (Version 2)
Quarter: 2019Q4

REPORT INFORMATION
  Report Type: Spontaneous
  Country: HR (occurrence: HR)
  Receive Date: 20191203
  Receipt Date: 20191206
  Transmission Date: 20200122
  Serious: Yes (Hospitalization)
  Sender: FDA-Public Use
  Company Number: HR-CELGENEUS-HRV-20191110866

PATIENT
  Age: 70 Year
  Sex: Female
  Weight: 46 kg

DRUGS (22)
  1. VENETOCLAX. [Concomitant]
     Active Substance: VENETOCLAX
     Dosage: 200 MILLIGRAM
     Route: 048
     Dates: start: 20171213, end: 20171220
  2. GRANISETRON [Concomitant]
     Active Substance: GRANISETRON
     Indication: PROPHYLAXIS OF NAUSEA AND VOMITING
     Route: 041
     Dates: start: 20171114
  3. BELODERM [Concomitant]
     Active Substance: BETAMETHASONE DIPROPIONATE
     Indication: PROPHYLAXIS
     Route: 061
     Dates: start: 20190411
  4. AZACITIDINE. [Suspect]
     Active Substance: AZACITIDINE
     Indication: ACUTE MYELOID LEUKAEMIA
     Dosage: 75 MILLIGRAM/SQ. METER
     Route: 058
     Dates: start: 20171113
  5. POTASSIUM CHLORIDE. [Concomitant]
     Active Substance: POTASSIUM CHLORIDE
     Indication: HYPOKALAEMIA
     Route: 041
     Dates: start: 20171213
  6. RANITIDINE. [Concomitant]
     Active Substance: RANITIDINE
     Indication: GASTRITIS
  7. NORMABEL [Concomitant]
     Active Substance: DIAZEPAM
     Indication: PROPHYLAXIS
     Route: 048
     Dates: start: 20181227
  8. HEPARIN GEL [Concomitant]
     Indication: THROMBOPHLEBITIS
     Dosage: 6 IU (INTERNATIONAL UNIT)
     Route: 061
     Dates: start: 20191119
  9. AMLODIPINE [Concomitant]
     Active Substance: AMLODIPINE BESYLATE
     Indication: HYPERTENSION
     Dosage: 5 MILLIGRAM
     Route: 048
     Dates: start: 20180926
  10. SINERSUL F [Concomitant]
     Indication: INFECTION PROPHYLAXIS
     Dosage: 800+160 MILLIGRAM
     Route: 048
     Dates: start: 20190411
  11. LACTULOSE. [Concomitant]
     Active Substance: LACTULOSE
     Indication: CONSTIPATION
     Route: 048
     Dates: start: 20190505
  12. CHLOROPYRAMINE [Concomitant]
     Active Substance: CHLOROPYRAMINE
     Indication: PRURITUS
     Route: 041
     Dates: start: 20180606
  13. VENETOCLAX. [Concomitant]
     Active Substance: VENETOCLAX
     Dosage: 400 MILLIGRAM
     Route: 048
     Dates: start: 20171115, end: 20171209
  14. METOCLOPRAMIDE. [Concomitant]
     Active Substance: METOCLOPRAMIDE
     Indication: NAUSEA
     Route: 041
     Dates: start: 20171114
  15. FUROSEMIDE. [Concomitant]
     Active Substance: FUROSEMIDE
     Indication: PROPHYLAXIS
     Route: 041
     Dates: start: 20171113
  16. RANITIDINE. [Concomitant]
     Active Substance: RANITIDINE
     Indication: PROPHYLAXIS
     Dosage: 150 MILLIGRAM
     Route: 048
     Dates: start: 20171220
  17. INDOMETHACINE [Concomitant]
     Active Substance: INDOMETHACIN
     Indication: THROMBOPHLEBITIS
     Dosage: 75 MILLIGRAM
     Route: 048
     Dates: start: 20191120
  18. VENETOCLAX. [Concomitant]
     Active Substance: VENETOCLAX
     Indication: ACUTE MYELOID LEUKAEMIA
     Dosage: 100 MILLIGRAM
     Route: 048
     Dates: start: 20171113, end: 20171113
  19. DEXAMETHASONE. [Concomitant]
     Active Substance: DEXAMETHASONE
     Indication: PROPHYLAXIS OF NAUSEA AND VOMITING
     Route: 041
     Dates: start: 20171113
  20. VENETOCLAX. [Concomitant]
     Active Substance: VENETOCLAX
     Dosage: 200 MILLIGRAM
     Route: 048
     Dates: start: 20171114, end: 20171114
  21. VENETOCLAX. [Concomitant]
     Active Substance: VENETOCLAX
     Dosage: 400 MILLIGRAM
     Route: 048
     Dates: start: 20171221
  22. PRIMROSE OIL [Concomitant]
     Indication: PROPHYLAXIS
     Dosage: A FEW DROPS
     Route: 003
     Dates: start: 20171113

REACTIONS (1)
  - Staphylococcal infection [Not Recovered/Not Resolved]

NARRATIVE: CASE EVENT DATE: 20191117
